FAERS Safety Report 21750895 (Version 1)
Quarter: 2022Q4

REPORT INFORMATION
  Report Type: Spontaneous
  Country: FR (occurrence: FR)
  Receive Date: 20221219
  Receipt Date: 20221219
  Transmission Date: 20230112
  Serious: Yes (Death, Other)
  Sender: FDA-Public Use
  Company Number: FR-BAXTER-2022BAX026248

PATIENT
  Age: 83 Year
  Sex: Male

DRUGS (3)
  1. DEXAMETHASONE [Suspect]
     Active Substance: DEXAMETHASONE
     Indication: Product used for unknown indication
     Dosage: (TREATMENT LINE NUMBER 7, DURATION: 5.6 MONTHS)
     Route: 065
     Dates: end: 20210917
  2. BORTEZOMIB [Suspect]
     Active Substance: BORTEZOMIB
     Indication: Product used for unknown indication
     Dosage: (TREATMENT LINE NUMBER 7, DURATION: 5.6 MONTHS)
     Route: 065
     Dates: end: 20210917
  3. CYCLOPHOSPHAMIDE [Suspect]
     Active Substance: CYCLOPHOSPHAMIDE
     Indication: Product used for unknown indication
     Dosage: 600 MG/DOSE 1 DOSE(S)/WEEK 3 WEEK(S)/CYCLE (TREATMENT LINE NUMBER 7, DURATION: 5.6 MONTHS)
     Route: 065
     Dates: end: 20210917

REACTIONS (1)
  - Chronic kidney disease [Fatal]

NARRATIVE: CASE EVENT DATE: 20210917
